FAERS Safety Report 5533952-7 (Version None)
Quarter: 2007Q4

REPORT INFORMATION
  Report Type: 
  Country: None (occurrence: None)
  Receive Date: 20071129
  Receipt Date: 20071107
  Transmission Date: 20080405
  Serious: Yes (Other)
  Sender: FDA-Public Use
  Company Number: 8028204

PATIENT
  Age: 7 Year
  Sex: Male
  Weight: 23 kg

DRUGS (2)
  1. EQUASYM [Suspect]
     Dosage: 20 MG /D
     Dates: start: 20061205
  2. METHYLPHENIDATE HCL [Concomitant]

REACTIONS (1)
  - TIC [None]
